FAERS Safety Report 4373536-X (Version None)
Quarter: 2004Q1

REPORT INFORMATION
  Report Type: 
  Country: None (occurrence: None)
  Receive Date: 20040305
  Receipt Date: 20031110
  Transmission Date: 20041129
  Serious: Yes (Other)
  Sender: FDA-Public Use
  Company Number: 2003UW14767

PATIENT
  Age: 64 Year
  Sex: Female

DRUGS (5)
  1. CRESTOR [Suspect]
     Dosage: 10 MG
  2. CELEBREX [Concomitant]
  3. LYSINE [Concomitant]
  4. CALCIUM [Concomitant]
  5. ASPIRIN [Concomitant]

REACTIONS (1)
  - LIBIDO DECREASED [None]
